FAERS Safety Report 7510686-0 (Version None)
Quarter: 2011Q2

REPORT INFORMATION
  Report Type: 
  Country: None (occurrence: None)
  Receive Date: 20110530
  Receipt Date: 20110519
  Transmission Date: 20111010
  Serious: Yes (Other)
  Sender: FDA-Public Use
  Company Number: PHHY2011US42561

PATIENT
  Sex: Female
  Weight: 89.796 kg

DRUGS (8)
  1. OMEPRAZOLE [Concomitant]
     Dosage: UNK UKN, UNK
  2. LEVOTHYROXINE SODIUM [Concomitant]
     Dosage: 112 MG, UNK
  3. MINOCYCLINE HCL [Concomitant]
     Dosage: UNK UKN, UNK
  4. GILENYA [Suspect]
     Indication: RELAPSING-REMITTING MULTIPLE SCLEROSIS
     Dosage: 0.5 MG, QD
     Route: 048
     Dates: start: 20110315, end: 20110519
  5. VENLAFAXINE [Concomitant]
     Dosage: 100 MG, BID
  6. TEGRETOL [Concomitant]
     Dosage: 200 MG, BID
  7. SIMVASTATIN [Concomitant]
     Dosage: 20 MG, UNK
  8. TRAZODONE HCL [Concomitant]
     Dosage: 50 MG, QHS

REACTIONS (4)
  - BLOOD PRESSURE DECREASED [None]
  - MACULAR OEDEMA [None]
  - EYE SWELLING [None]
  - PERIORBITAL OEDEMA [None]
